FAERS Safety Report 7951278-9 (Version None)
Quarter: 2011Q4

REPORT INFORMATION
  Report Type: 
  Country: None (occurrence: None)
  Receive Date: 20111128
  Receipt Date: 20111122
  Transmission Date: 20120403
  Serious: Yes (Hospitalization)
  Sender: FDA-Public Use
  Company Number: A0945963A

PATIENT
  Age: 72 Year
  Sex: Female

DRUGS (4)
  1. ALKA-SELTZER (FORMULATION UNKNOWN) (ALKA-SELTZER) [Suspect]
     Indication: DYSPEPSIA
     Dates: start: 20110916
  2. LACTOPEROXIDSE + LYSOZYME (FORMULATION UNKNOWN) (LACTOPEROXIDASE + LYS [Suspect]
     Indication: DRY MOUTH
  3. CALCIUM CARBONATE 9FORMULATION UNKNOWN) (CALCIUM CARBONATE) [Suspect]
     Indication: DYSPEPSIA
  4. OMEPRAZOLE [Suspect]
     Indication: DYSPEPSIA
     Dates: start: 20110916

REACTIONS (12)
  - POOR QUALITY SLEEP [None]
  - MALAISE [None]
  - BLOOD SODIUM DECREASED [None]
  - VOMITING [None]
  - DRUG INEFFECTIVE [None]
  - AMNESIA [None]
  - ASPIRATION [None]
  - DYSPEPSIA [None]
  - LOSS OF CONSCIOUSNESS [None]
  - FEELING ABNORMAL [None]
  - COUGH [None]
  - HYPERCHLORHYDRIA [None]
